FAERS Safety Report 13594204 (Version 3)
Quarter: 2017Q4

REPORT INFORMATION
  Report Type: Spontaneous
  Country: US (occurrence: US)
  Receive Date: 20170530
  Receipt Date: 20171004
  Transmission Date: 20180320
  Serious: Yes (Disabling, Other)
  Sender: FDA-Public Use
  Company Number: US-REGENERON PHARMACEUTICALS, INC.-2017-14053

PATIENT

DRUGS (22)
  1. EYLEA [Suspect]
     Active Substance: AFLIBERCEPT
     Dosage: RIGHT EYE, EVERY 4 WEEKS, FOURTH INJECTION
     Route: 031
     Dates: start: 20170223, end: 20170223
  2. BETADINE [Suspect]
     Active Substance: POVIDONE-IODINE
     Indication: PRODUCT USED FOR UNKNOWN INDICATION
     Route: 047
  3. OMEGA 3                            /01333901/ [Concomitant]
     Active Substance: FISH OIL\TOCOPHEROL
     Indication: PRODUCT USED FOR UNKNOWN INDICATION
     Dosage: 1200 MG MILLIGRAM(S), AS NECESSARY
  4. VITAMIN B12 [Concomitant]
     Active Substance: CYANOCOBALAMIN
     Indication: PRODUCT USED FOR UNKNOWN INDICATION
     Dosage: 1000 ?G MICROGRAM(S), AS NECESSARY
     Route: 060
  5. CALCIUM CARBONATE. [Concomitant]
     Active Substance: CALCIUM CARBONATE
     Indication: PRODUCT USED FOR UNKNOWN INDICATION
     Dosage: 648 MG MILLIGRAM(S), QD AND PRN
  6. LUTEIN                             /01638501/ [Concomitant]
     Active Substance: LUTEIN
     Indication: PRODUCT USED FOR UNKNOWN INDICATION
     Dosage: 2 MG MILLIGRAM(S), UNK
  7. CARBOXYMETHYLCELLULOSE [Concomitant]
     Active Substance: CARBOXYMETHYLCELLULOSE
     Indication: PRODUCT USED FOR UNKNOWN INDICATION
  8. MAGNESIUM [Concomitant]
     Active Substance: MAGNESIUM
     Indication: PRODUCT USED FOR UNKNOWN INDICATION
     Dosage: 500 MG MILLIGRAMS QD PC, AFTER MEALS
  9. EYLEA [Suspect]
     Active Substance: AFLIBERCEPT
     Dosage: 2 MG MILLIGRAM(S), RIGHT EYE, EVERY 4 WEEKS
     Route: 031
     Dates: start: 20161229, end: 20161229
  10. EYLEA [Suspect]
     Active Substance: AFLIBERCEPT
     Dosage: RIGHT EYE, RECEIVED ON THE FIFTH WEEK, THE NEXT ONE EVERY 6 WEEKS
     Route: 031
     Dates: start: 20170330, end: 20170330
  11. SYNTHROID [Concomitant]
     Active Substance: LEVOTHYROXINE SODIUM
     Indication: PRODUCT USED FOR UNKNOWN INDICATION
     Dosage: 112 ?G MICROGRAM(S), QD, 1 HR AC, BEFORE MEAL
  12. VITAMIN D3 [Concomitant]
     Active Substance: CHOLECALCIFEROL
     Indication: PRODUCT USED FOR UNKNOWN INDICATION
     Dosage: 2000 IU INTERNATIONAL UNIT(S), AS NECESSARY
  13. TYLENOL [Concomitant]
     Active Substance: ACETAMINOPHEN
     Indication: PRODUCT USED FOR UNKNOWN INDICATION
     Dosage: 2 TABS Q 6 HRS PRN
     Route: 048
  14. EYLEA [Suspect]
     Active Substance: AFLIBERCEPT
     Dosage: RIGHT EYE, EVERY 4 WEEKS, THIRD INJECTION
     Route: 031
     Dates: start: 20170126, end: 20170126
  15. CALCITRIOL. [Concomitant]
     Active Substance: CALCITRIOL
     Indication: PRODUCT USED FOR UNKNOWN INDICATION
     Dosage: 0.25 ?G MICROGRAM(S), QD
  16. EYLEA [Suspect]
     Active Substance: AFLIBERCEPT
     Indication: EXUDATIVE RETINOPATHY
     Dosage: 2 MG MILLIGRAM(S), RIGHT EYE, MONTHLY
     Route: 031
     Dates: start: 20161128
  17. EYLEA [Suspect]
     Active Substance: AFLIBERCEPT
     Dosage: RIGHT EYE, EVERY 6 WEEKS, SIXTH INJECTION
     Route: 031
     Dates: start: 20170511, end: 20170511
  18. PROAIR HFA [Concomitant]
     Active Substance: ALBUTEROL SULFATE
     Indication: PRODUCT USED FOR UNKNOWN INDICATION
     Dosage: HFA 108/ (90 BASE) MCG/ACT 1-2 PUFFS Q4-6 HRS PRN
  19. ARTIFICIAL TEARS                   /00222401/ [Suspect]
     Active Substance: PROPYLENE GLYCOL
     Indication: PRODUCT USED FOR UNKNOWN INDICATION
     Dosage: UNK, AS NECESSARY
  20. SYSTANE (HYPROMELLOSE 2910 (4000 MPA.S)) [Concomitant]
     Active Substance: HYPROMELLOSE 2910 (4000 MPA.S)
     Indication: PRODUCT USED FOR UNKNOWN INDICATION
     Dosage: EYE DROP
  21. SPIRIVA [Concomitant]
     Active Substance: TIOTROPIUM BROMIDE MONOHYDRATE
     Indication: PRODUCT USED FOR UNKNOWN INDICATION
     Dosage: 18 ?G MICROGRAM(S),2 PUFFS QD
  22. ADVAIR HFA [Concomitant]
     Active Substance: FLUTICASONE PROPIONATE\SALMETEROL XINAFOATE
     Indication: PRODUCT USED FOR UNKNOWN INDICATION
     Dosage: 250-50, 1 PUFF BID

REACTIONS (16)
  - Blindness transient [Recovered/Resolved]
  - Eye swelling [Not Recovered/Not Resolved]
  - Dry eye [Unknown]
  - Eyelid oedema [Unknown]
  - Eye pain [Not Recovered/Not Resolved]
  - Scleral haemorrhage [Recovered/Resolved]
  - Detachment of retinal pigment epithelium [Unknown]
  - Visual impairment [Not Recovered/Not Resolved]
  - Injection site erythema [Unknown]
  - Erythema of eyelid [Unknown]
  - Eye irritation [Recovered/Resolved]
  - Eye discharge [Unknown]
  - Scleral disorder [Recovered/Resolved]
  - Lacrimation increased [Not Recovered/Not Resolved]
  - Eyelid irritation [Recovered/Resolved]
  - Off label use [Not Recovered/Not Resolved]

NARRATIVE: CASE EVENT DATE: 20161128
